FAERS Safety Report 6554491-0 (Version None)
Quarter: 2010Q1

REPORT INFORMATION
  Report Type: 
  Country: None (occurrence: None)
  Receive Date: 20100127
  Receipt Date: 20100119
  Transmission Date: 20100710
  Serious: Yes (Other)
  Sender: FDA-Public Use
  Company Number: US-JNJCH-2010002327

PATIENT
  Age: 51 Year
  Sex: Male
  Weight: 70.8 kg

DRUGS (3)
  1. LISTERINE WHITENING VIBRANT WHITE PRE-BRUSH RINSE [Suspect]
     Indication: DENTAL CARE
     Dosage: TEXT:A CAPFUL 2 TO 3 TIMES DAILY
     Route: 048
  2. ALTACE [Concomitant]
     Indication: BLOOD PRESSURE INCREASED
     Dosage: TEXT:10MG ONCE AT BEDTIME
     Route: 048
  3. PRILOSEC [Concomitant]
     Indication: ABDOMINAL DISCOMFORT
     Dosage: TEXT:2 TABLETS DAILY
     Route: 048

REACTIONS (6)
  - ABDOMINAL PAIN UPPER [None]
  - APPLICATION SITE BURN [None]
  - INAPPROPRIATE SCHEDULE OF DRUG ADMINISTRATION [None]
  - MUCOSAL EXFOLIATION [None]
  - ORAL MUCOSAL EXFOLIATION [None]
  - VOMITING [None]
